FAERS Safety Report 13358408 (Version 1)
Quarter: 2017Q1

REPORT INFORMATION
  Report Type: Report from Study
  Country: DE (occurrence: DE)
  Receive Date: 20170322
  Receipt Date: 20170322
  Transmission Date: 20170429
  Serious: Yes (Hospitalization)
  Sender: FDA-Public Use
  Company Number: DE-TEVA-749132GER

PATIENT
  Sex: Female

DRUGS (15)
  1. PREDNISOLONE. [Suspect]
     Active Substance: PREDNISOLONE
     Indication: B-CELL LYMPHOMA
     Dosage: 100MG, 5X FOR 6 DAYS
     Route: 048
     Dates: start: 20160411, end: 20160416
  2. PREDNISOLONE. [Suspect]
     Active Substance: PREDNISOLONE
     Dosage: DAY 2 TO 5
     Route: 048
     Dates: start: 20160722, end: 20161011
  3. CYCLOPHOSPHAMIDE. [Suspect]
     Active Substance: CYCLOPHOSPHAMIDE
     Indication: B-CELL LYMPHOMA
     Dosage: 1300 MILLIGRAM DAILY; FOR 1 DAY (1300 MG) 1X1 DAY
     Route: 042
     Dates: start: 20160412, end: 20160412
  4. METFORMIN [Concomitant]
     Active Substance: METFORMIN HYDROCHLORIDE
     Indication: DIABETES MELLITUS
     Route: 048
  5. DOXORUBICIN [Suspect]
     Active Substance: DOXORUBICIN
     Indication: B-CELL LYMPHOMA
     Dosage: 88 MILLIGRAM DAILY; FOR 1 DAY; 88 MG 1X1 DAY
     Route: 042
     Dates: start: 20160412, end: 20160412
  6. METHOTREXATE. [Suspect]
     Active Substance: METHOTREXATE
     Indication: B-CELL LYMPHOMA
     Dosage: 2775 MILLIGRAM DAILY; FOR 1 DAY, 2775 MG 1X1 DAY
     Route: 042
     Dates: start: 20160331, end: 20160331
  7. RITUXIMAB [Suspect]
     Active Substance: RITUXIMAB
     Indication: B-CELL LYMPHOMA
     Dosage: MOST RECENT CYCLE OF NUMBER 1 GIVEN ON 11-APR PRIOR TO SAE (700 MG 2X FOR 13 DAYS)
     Route: 042
     Dates: start: 20160330
  8. ALLOPURINOL. [Concomitant]
     Active Substance: ALLOPURINOL
     Indication: GOUT
     Route: 048
  9. VENLAFAXINE [Concomitant]
     Active Substance: VENLAFAXINE HYDROCHLORIDE
     Indication: DEPRESSION
     Route: 048
  10. COLECALCIFEROL [Concomitant]
     Active Substance: CHOLECALCIFEROL
     Indication: VITAMIN SUPPLEMENTATION
     Dosage: 2857.1429 IU (INTERNATIONAL UNIT) DAILY;
     Route: 048
     Dates: start: 20160328
  11. BUPROPRION [Concomitant]
     Active Substance: BUPROPION
     Indication: DEPRESSION
     Route: 048
  12. BISOPROLOL [Concomitant]
     Active Substance: BISOPROLOL
     Indication: HYPERTENSION
     Dosage: 2.5 MILLIGRAM DAILY;
     Route: 048
  13. PEGFILGRASTIM [Suspect]
     Active Substance: PEGFILGRASTIM
     Indication: B-CELL LYMPHOMA
     Dosage: 6 MILLIGRAM DAILY; FOR 1 DAY (6 MG) 1X1 DAY
     Route: 058
     Dates: start: 20160415, end: 20160415
  14. ACICLOVIR [Concomitant]
     Active Substance: ACYCLOVIR
     Indication: ANTIVIRAL PROPHYLAXIS
     Dosage: 1600 MILLIGRAM DAILY;
     Route: 048
     Dates: start: 20160411
  15. VINCRISTINE [Suspect]
     Active Substance: VINCRISTINE
     Indication: B-CELL LYMPHOMA
     Dosage: RECENT DOSE STARTED PRIOR TO EVENT ON 12-APR-2016 (3.7 MG 1X)
     Route: 042
     Dates: start: 20160412

REACTIONS (1)
  - Muscular weakness [Recovered/Resolved]

NARRATIVE: CASE EVENT DATE: 20160419
